FAERS Safety Report 17591592 (Version 7)
Quarter: 2020Q3

REPORT INFORMATION
  Report Type: Report from Study
  Country: GB (occurrence: GB)
  Receive Date: 20200327
  Receipt Date: 20200709
  Transmission Date: 20201102
  Serious: Yes (Hospitalization)
  Sender: FDA-Public Use
  Company Number: NVSC2019GB076834

PATIENT
  Age: 67 Year
  Sex: Male
  Weight: 67.2 kg

DRUGS (17)
  1. PLACEBO [Suspect]
     Active Substance: UNSPECIFIED INGREDIENT
     Indication: NON-SMALL CELL LUNG CANCER
     Dosage: UNK
     Route: 058
     Dates: start: 20191203
  2. ZOMORPH [Concomitant]
     Active Substance: MORPHINE SULFATE
     Indication: NECK PAIN
     Dosage: 20 MG
     Route: 065
     Dates: start: 20191210
  3. AMLODIPINE [Concomitant]
     Active Substance: AMLODIPINE BESYLATE
     Indication: PRODUCT USED FOR UNKNOWN INDICATION
     Dosage: 5 MG
     Route: 065
     Dates: start: 20160101
  4. BENDROFLUMETHIAZIDE [Concomitant]
     Active Substance: BENDROFLUMETHIAZIDE
     Indication: PRODUCT USED FOR UNKNOWN INDICATION
     Dosage: 2.5 MG
     Route: 065
     Dates: start: 20091001
  5. METFORMIN [Concomitant]
     Active Substance: METFORMIN HYDROCHLORIDE
     Indication: PRODUCT USED FOR UNKNOWN INDICATION
     Dosage: 500 MG
     Route: 065
     Dates: start: 20170101
  6. HYDROXOCOBALAMIN [Concomitant]
     Active Substance: HYDROXOCOBALAMIN
     Indication: PROPHYLAXIS
     Dosage: UNK
     Route: 030
     Dates: start: 20191203, end: 20200121
  7. COMPARATOR PEMETREXED [Suspect]
     Active Substance: PEMETREXED DISODIUM
     Indication: NON-SMALL CELL LUNG CANCER
     Dosage: 900 MG, ONCE/SINGLE
     Route: 042
     Dates: start: 20191203, end: 20191203
  8. FOLIC ACID. [Concomitant]
     Active Substance: FOLIC ACID
     Indication: PROPHYLAXIS
     Dosage: 400 MICROEQUIVALENT, QD
     Route: 048
     Dates: start: 20191203, end: 20200211
  9. ZOMORPH [Concomitant]
     Active Substance: MORPHINE SULFATE
     Dosage: 10 MG
     Route: 065
     Dates: start: 20191210, end: 20200226
  10. PREGABALIN. [Concomitant]
     Active Substance: PREGABALIN
     Indication: NECK PAIN
     Dosage: UNK
     Route: 065
     Dates: start: 20191210
  11. ONDANSETRAN [Concomitant]
     Active Substance: ONDANSETRON HYDROCHLORIDE
     Indication: NAUSEA
     Dosage: 8 MG, BID
     Route: 048
     Dates: start: 20191203, end: 20200121
  12. ORAMORPH [Concomitant]
     Active Substance: MORPHINE SULFATE
     Indication: NECK PAIN
     Dosage: UNK
     Route: 065
     Dates: start: 20190801, end: 20200306
  13. PEMBROLIZUMAB. [Suspect]
     Active Substance: PEMBROLIZUMAB
     Indication: NON-SMALL CELL LUNG CANCER
     Dosage: 200 MG, ONCE/SINGLE
     Route: 042
     Dates: start: 20191203
  14. PRAVASTATIN. [Concomitant]
     Active Substance: PRAVASTATIN
     Indication: PRODUCT USED FOR UNKNOWN INDICATION
     Dosage: 40 MG
     Route: 065
     Dates: start: 20170601
  15. COMPARATOR PEMETREXED [Suspect]
     Active Substance: PEMETREXED DISODIUM
     Dosage: 800 MG, ONCE/SINGLE
     Route: 042
     Dates: start: 20191231
  16. COMPARATOR CARBOPLATIN [Suspect]
     Active Substance: CARBOPLATIN
     Indication: NON-SMALL CELL LUNG CANCER
     Dosage: 500 MG, ONCE/SINGLE
     Route: 042
     Dates: start: 20191203
  17. METOCLOPRAMIDE. [Concomitant]
     Active Substance: METOCLOPRAMIDE
     Indication: NAUSEA
     Dosage: 10 MG, PRN
     Route: 048
     Dates: start: 20191203, end: 20200121

REACTIONS (1)
  - Influenza [Recovered/Resolved]

NARRATIVE: CASE EVENT DATE: 20191220
